FAERS Safety Report 5777340-7 (Version None)
Quarter: 2008Q2

REPORT INFORMATION
  Report Type: 
  Country: None (occurrence: None)
  Receive Date: 20080618
  Receipt Date: 20080610
  Transmission Date: 20081010
  Serious: Yes (Other)
  Sender: FDA-Public Use
  Company Number: PHHY2008US10881

PATIENT
  Sex: Male

DRUGS (5)
  1. METOPROLOL [Suspect]
  2. CAPTOPRIL [Concomitant]
     Dosage: 25 MG, QD
  3. ASPIRIN [Concomitant]
     Dosage: 81 MG, QD
  4. NIFEDIPINE [Concomitant]
     Dosage: 10 MG, QD
  5. ENALAPRIL MALEATE [Concomitant]
     Dosage: 10 MG, QD

REACTIONS (5)
  - ARRHYTHMIA [None]
  - BLOOD PRESSURE INCREASED [None]
  - CARDIAC DISORDER [None]
  - CHEST PAIN [None]
  - HEART RATE INCREASED [None]
